FAERS Safety Report 7312022-1 (Version None)
Quarter: 2011Q1

REPORT INFORMATION
  Report Type: 
  Country: None (occurrence: None)
  Receive Date: 20110214
  Receipt Date: 20110129
  Transmission Date: 20110831
  Serious: Yes (Hospitalization, Other)
  Sender: FDA-Public Use
  Company Number: 2011AP000172

PATIENT
  Age: 53 Year
  Sex: Female

DRUGS (1)
  1. LITHIUM CARBONATE CAP [Suspect]
     Indication: BIPOLAR DISORDER
     Dosage: 300 MG;TID

REACTIONS (11)
  - HYPERCALCAEMIA [None]
  - DISTURBANCE IN ATTENTION [None]
  - NAUSEA [None]
  - DECREASED APPETITE [None]
  - ANTIPSYCHOTIC DRUG LEVEL INCREASED [None]
  - BLOOD MAGNESIUM DECREASED [None]
  - ABDOMINAL PAIN [None]
  - CONSTIPATION [None]
  - ASTHENIA [None]
  - FATIGUE [None]
  - MUSCULAR WEAKNESS [None]
